FAERS Safety Report 16576949 (Version 2)
Quarter: 2019Q3

REPORT INFORMATION
  Report Type: Spontaneous
  Country: RU (occurrence: RU)
  Receive Date: 20190716
  Receipt Date: 20190909
  Transmission Date: 20191004
  Serious: Yes (Hospitalization, Other)
  Sender: FDA-Public Use
  Company Number: RU-BAYER-2019-132468

PATIENT
  Age: 78 Year
  Sex: Female

DRUGS (1)
  1. ULTRAVIST [Suspect]
     Active Substance: IOPROMIDE
     Indication: COMPUTERISED TOMOGRAM ABDOMEN
     Dosage: 100 ML, ONCE
     Route: 042
     Dates: start: 20190709, end: 20190709

REACTIONS (6)
  - Erythema [None]
  - Suspected product quality issue [None]
  - Angioedema [None]
  - Paraesthesia [None]
  - Pruritus [None]
  - Asphyxia [None]

NARRATIVE: CASE EVENT DATE: 20190709
